FAERS Safety Report 9239353 (Version 1)
Quarter: 2013Q2

REPORT INFORMATION
  Report Type: Spontaneous
  Country: US (occurrence: US)
  Receive Date: 20130418
  Receipt Date: 20130418
  Transmission Date: 20140414
  Serious: Yes (Hospitalization)
  Sender: FDA-Public Use
  Company Number: US-SANOFI-AVENTIS-2012SA047771

PATIENT
  Age: 86 Year
  Sex: Female

DRUGS (2)
  1. LOVENOX [Suspect]
     Indication: THROMBOSIS PROPHYLAXIS
     Dates: start: 201206
  2. COUMADIN [Suspect]
     Indication: THROMBOSIS PROPHYLAXIS
     Dates: start: 201206

REACTIONS (2)
  - Deep vein thrombosis [Not Recovered/Not Resolved]
  - Local swelling [Not Recovered/Not Resolved]
